FAERS Safety Report 8573525-5 (Version None)
Quarter: 2012Q3

REPORT INFORMATION
  Report Type: 
  Country: None (occurrence: None)
  Receive Date: 20120806
  Receipt Date: 20120731
  Transmission Date: 20120928
  Serious: Yes (Hospitalization, Other)
  Sender: FDA-Public Use
  Company Number: CA-BAYER-2012-077395

PATIENT
  Age: 51 Year
  Sex: Male

DRUGS (1)
  1. BETASERON [Suspect]
     Indication: MULTIPLE SCLEROSIS
     Dosage: 0.25 MG, UNK
     Dates: start: 20030515, end: 20120726

REACTIONS (8)
  - INJECTION SITE PAIN [None]
  - PAIN [None]
  - INJECTION SITE URTICARIA [None]
  - ABASIA [None]
  - INJECTION SITE INDURATION [None]
  - DISCOMFORT [None]
  - ABDOMINAL DISCOMFORT [None]
  - INJECTION SITE INFECTION [None]
